FAERS Safety Report 12214254 (Version 3)
Quarter: 2016Q2

REPORT INFORMATION
  Report Type: Report from Study
  Country: IL (occurrence: IL)
  Receive Date: 20160328
  Receipt Date: 20160520
  Transmission Date: 20160815
  Serious: Yes (Hospitalization)
  Sender: FDA-Public Use
  Company Number: IL-JNJFOC-20160316045

PATIENT
  Sex: Male

DRUGS (1)
  1. SIMPONI [Suspect]
     Active Substance: GOLIMUMAB
     Indication: ANKYLOSING SPONDYLITIS
     Route: 058
     Dates: start: 20150903, end: 20160403

REACTIONS (5)
  - Influenza [Recovering/Resolving]
  - Drug ineffective [Unknown]
  - Cough [Not Recovered/Not Resolved]
  - Appendicitis [Unknown]
  - Treatment noncompliance [Unknown]
